FAERS Safety Report 15212205 (Version 1)
Quarter: 2018Q3

REPORT INFORMATION
  Report Type: Report from Study
  Country: FR (occurrence: FR)
  Receive Date: 20180730
  Receipt Date: 20180730
  Transmission Date: 20181010
  Serious: Yes (Other)
  Sender: FDA-Public Use
  Company Number: FR-TEVA-2018-FR-932447

PATIENT
  Age: 29 Year
  Sex: Male
  Weight: 57 kg

DRUGS (13)
  1. IMOVANE [Concomitant]
     Active Substance: ZOPICLONE
     Indication: DEPRESSION
     Dosage: 7.5 MILLIGRAM DAILY;
     Route: 048
     Dates: start: 20160506
  2. OGASTORO [Concomitant]
     Active Substance: LANSOPRAZOLE
     Indication: GASTROOESOPHAGEAL REFLUX DISEASE
     Dosage: 30 MILLIGRAM DAILY;
     Route: 048
     Dates: start: 20160521
  3. CELLCEPT [Concomitant]
     Active Substance: MYCOPHENOLATE MOFETIL\MYCOPHENOLATE MOFETIL HYDROCHLORIDE
     Indication: RENAL TRANSPLANT
     Dosage: 1500 MILLIGRAM DAILY;
     Route: 048
     Dates: start: 20160708
  4. IMOVANE [Concomitant]
     Active Substance: ZOPICLONE
     Dosage: 15 MILLIGRAM DAILY;
     Route: 048
     Dates: start: 20161115
  5. TEMERIT [Concomitant]
     Active Substance: NEBIVOLOL
     Indication: HYPERTENSION
     Dosage: 5 MILLIGRAM DAILY;
     Route: 048
     Dates: start: 20160507
  6. AMLOR [Concomitant]
     Active Substance: AMLODIPINE BESYLATE
     Indication: HYPERTENSION
     Dosage: 10 MILLIGRAM DAILY;
     Route: 048
     Dates: start: 20160418
  7. TACROLIMUS. [Suspect]
     Active Substance: TACROLIMUS
     Indication: RENAL TRANSPLANT
     Dosage: 4 MILLIGRAM DAILY;
     Route: 048
     Dates: start: 20160528
  8. OGAST [Concomitant]
     Active Substance: LANSOPRAZOLE
     Indication: GASTROOESOPHAGEAL REFLUX DISEASE
     Dosage: 30 MILLIGRAM DAILY;
     Route: 048
     Dates: start: 20161224
  9. TACROLIMUS. [Suspect]
     Active Substance: TACROLIMUS
     Dosage: 3.5 MILLIGRAM DAILY;
     Route: 048
     Dates: start: 20160713
  10. XATRAL [Concomitant]
     Active Substance: ALFUZOSIN
     Indication: DYSURIA
     Dosage: 10 MILLIGRAM DAILY;
     Route: 048
     Dates: start: 20160424
  11. ROVALCYTE [Concomitant]
     Active Substance: VALGANCICLOVIR HYDROCHLORIDE
     Indication: INFECTION PROPHYLAXIS
     Dosage: 900 MILLIGRAM DAILY;
     Route: 048
     Dates: start: 20160418
  12. CORTANCYL [Concomitant]
     Active Substance: PREDNISONE
     Indication: RENAL TRANSPLANT
     Dosage: 10 MILLIGRAM DAILY;
     Route: 048
     Dates: start: 20160527
  13. BACTRIM [Concomitant]
     Active Substance: SULFAMETHOXAZOLE\TRIMETHOPRIM
     Indication: ANTIFUNGAL PROPHYLAXIS
     Dosage: 960 MILLIGRAM DAILY; 960 MG (800/160 MG), ONCE DAILY
     Route: 048
     Dates: start: 20160418

REACTIONS (2)
  - Skin papilloma [Not Recovered/Not Resolved]
  - Skin papilloma [Recovered/Resolved]

NARRATIVE: CASE EVENT DATE: 201607
